FAERS Safety Report 9310063 (Version 4)
Quarter: 2013Q3

REPORT INFORMATION
  Report Type: Spontaneous
  Country: US (occurrence: US)
  Receive Date: 20130527
  Receipt Date: 20130809
  Transmission Date: 20140515
  Serious: No
  Sender: FDA-Public Use
  Company Number: US-009507513-1305USA013310

PATIENT
  Sex: Female

DRUGS (2)
  1. PEG-INTRON [Suspect]
     Indication: HEPATITIS C
     Dosage: REDIPEN, UNK
     Route: 058
     Dates: start: 20130510
  2. REBETOL [Suspect]
     Indication: HEPATITIS C
     Dosage: UNK
     Route: 048
     Dates: start: 20130510

REACTIONS (10)
  - Injection site reaction [Unknown]
  - Pruritus [Unknown]
  - Injection site reaction [Unknown]
  - Myalgia [Unknown]
  - Back pain [Unknown]
  - Fatigue [Unknown]
  - Temperature regulation disorder [Unknown]
  - Depressed mood [Unknown]
  - Fatigue [Unknown]
  - Dyspnoea [Unknown]
